FAERS Safety Report 7110763-2 (Version None)
Quarter: 2010Q4

REPORT INFORMATION
  Report Type: 
  Country: None (occurrence: None)
  Receive Date: 20101118
  Receipt Date: 20101102
  Transmission Date: 20110411
  Serious: Yes (Other)
  Sender: FDA-Public Use
  Company Number: B0684709A

PATIENT
  Sex: Female

DRUGS (1)
  1. VIROLEX [Suspect]
     Indication: ORAL HERPES
     Route: 065
     Dates: start: 20101015, end: 20101019

REACTIONS (7)
  - BURNING SENSATION [None]
  - DERMATITIS CONTACT [None]
  - ERYTHEMA OF EYELID [None]
  - ESCHAR [None]
  - EYELID OEDEMA [None]
  - OCULAR HYPERAEMIA [None]
  - PRURITUS [None]
